FAERS Safety Report 16375629 (Version 2)
Quarter: 2019Q3

REPORT INFORMATION
  Report Type: Spontaneous
  Country: BR (occurrence: BR)
  Receive Date: 20190531
  Receipt Date: 20190704
  Transmission Date: 20191004
  Serious: Yes (Life-Threatening, Hospitalization, Other)
  Sender: FDA-Public Use
  Company Number: BR-AMGEN-BRASP2019083872

PATIENT
  Age: 57 Year
  Sex: Male

DRUGS (1)
  1. REPATHA [Suspect]
     Active Substance: EVOLOCUMAB
     Indication: PRODUCT USED FOR UNKNOWN INDICATION
     Dosage: 140 MILLIGRAM
     Route: 042

REACTIONS (4)
  - Intraventricular haemorrhage [Recovering/Resolving]
  - Rhinitis [Unknown]
  - Nausea [Unknown]
  - Cough [Unknown]

NARRATIVE: CASE EVENT DATE: 20190319
